FAERS Safety Report 17479054 (Version 1)
Quarter: 2020Q1

REPORT INFORMATION
  Report Type: Spontaneous
  Country: CH (occurrence: CH)
  Receive Date: 20200228
  Receipt Date: 20200228
  Transmission Date: 20200409
  Serious: Yes (Other)
  Sender: FDA-Public Use
  Company Number: CH-B.I. PHARMACEUTICALS,INC./RIDGEFIELD-2020-BI-010829

PATIENT
  Sex: Male

DRUGS (2)
  1. GILOTRIF [Suspect]
     Active Substance: AFATINIB
     Indication: BRONCHIAL CARCINOMA
     Route: 065
     Dates: start: 201911, end: 201911
  2. GILOTRIF [Suspect]
     Active Substance: AFATINIB
     Indication: METASTASES TO CENTRAL NERVOUS SYSTEM

REACTIONS (3)
  - Malignant neoplasm progression [Unknown]
  - Off label use [Unknown]
  - Mucosal inflammation [Unknown]
